FAERS Safety Report 24318351 (Version 1)
Quarter: 2024Q3

REPORT INFORMATION
  Report Type: Spontaneous
  Country: US (occurrence: US)
  Receive Date: 20240913
  Receipt Date: 20240913
  Transmission Date: 20241017
  Serious: Yes (Hospitalization)
  Sender: ELI LILLY AND CO
  Company Number: US-ELI_LILLY_AND_COMPANY-US202409001312

PATIENT
  Age: 67 Year
  Sex: Female

DRUGS (2)
  1. VERZENIO [Suspect]
     Active Substance: ABEMACICLIB
     Indication: Breast cancer
     Dosage: UNK UNK, UNKNOWN
     Route: 048
  2. CAMIZESTRANT [Concomitant]
     Active Substance: CAMIZESTRANT
     Indication: Breast cancer

REACTIONS (2)
  - Raynaud^s phenomenon [Not Recovered/Not Resolved]
  - Hypoaesthesia [Not Recovered/Not Resolved]
